FAERS Safety Report 17560063 (Version 1)
Quarter: 2020Q1

REPORT INFORMATION
  Report Type: Spontaneous
  Country: US (occurrence: US)
  Receive Date: 20200318
  Receipt Date: 20200318
  Transmission Date: 20200409
  Serious: Yes (Hospitalization)
  Sender: FDA-Public Use
  Company Number: None

PATIENT
  Age: 65 Year
  Sex: Female

DRUGS (14)
  1. MYCOPHENOLATE [Concomitant]
     Active Substance: MYCOPHENOLIC ACID
  2. SMZ/TMP [Concomitant]
     Active Substance: SULFAMETHOXAZOLE\TRIMETHOPRIM
  3. URSODIOL. [Concomitant]
     Active Substance: URSODIOL
  4. POSACONAZOLE [Concomitant]
     Active Substance: POSACONAZOLE
  5. ACYCLOVIR. [Concomitant]
     Active Substance: ACYCLOVIR
  6. METHOBARBAM [Concomitant]
  7. PREVYMIS [Suspect]
     Active Substance: LETERMOVIR
     Indication: TRANSPLANT
     Route: 048
     Dates: start: 20200220
  8. CEFDINIR. [Concomitant]
     Active Substance: CEFDINIR
  9. ONDANSETRON [Concomitant]
     Active Substance: ONDANSETRON
  10. VORICONAZOLE. [Concomitant]
     Active Substance: VORICONAZOLE
  11. OXYCONTIN [Concomitant]
     Active Substance: OXYCODONE HYDROCHLORIDE
  12. VITAMIN D3 [Concomitant]
     Active Substance: CHOLECALCIFEROL
  13. GABAPENTIN. [Concomitant]
     Active Substance: GABAPENTIN
  14. TACROLIMUS. [Concomitant]
     Active Substance: TACROLIMUS

REACTIONS (1)
  - Pneumonia viral [None]

NARRATIVE: CASE EVENT DATE: 20200310
